FAERS Safety Report 10153374 (Version 4)
Quarter: 2015Q2

REPORT INFORMATION
  Report Type: Report from Study
  Country: US (occurrence: US)
  Receive Date: 20140505
  Receipt Date: 20150416
  Transmission Date: 20150821
  Serious: Yes (Death, Hospitalization)
  Sender: FDA-Public Use
  Company Number: US-ACTELION-A-US2014-98094

PATIENT
  Age: 25 Year
  Sex: Male

DRUGS (5)
  1. VELETRI [Suspect]
     Active Substance: EPOPROSTENOL
     Indication: PULMONARY ARTERIAL HYPERTENSION
     Dosage: 30 NG/KG, PER MIN
     Route: 042
     Dates: start: 20101229
  2. TREPROSTINIL [Concomitant]
     Active Substance: TREPROSTINIL
  3. VELETRI [Suspect]
     Active Substance: EPOPROSTENOL
     Dosage: 15 NG/KG/MIN
     Route: 042
     Dates: start: 2013, end: 20141110
  4. MACITENTAN [Suspect]
     Active Substance: MACITENTAN
     Indication: PULMONARY ARTERIAL HYPERTENSION
     Dosage: 10 MG, QD
     Route: 048
     Dates: start: 201401, end: 20141110
  5. ADCIRCA [Concomitant]
     Active Substance: TADALAFIL

REACTIONS (11)
  - Condition aggravated [Not Recovered/Not Resolved]
  - Acute kidney injury [Unknown]
  - Cardiac failure [Not Recovered/Not Resolved]
  - Weight increased [Unknown]
  - Device related sepsis [Fatal]
  - Pulmonary arterial hypertension [Not Recovered/Not Resolved]
  - Fluid retention [Unknown]
  - Dialysis [Not Recovered/Not Resolved]
  - Catheter culture positive [Fatal]
  - Staphylococcus test positive [Fatal]
  - Renal impairment [Not Recovered/Not Resolved]
